FAERS Safety Report 24782575 (Version 2)
Quarter: 2025Q2

REPORT INFORMATION
  Report Type: Report from Study
  Country: DE (occurrence: DE)
  Receive Date: 20241227
  Receipt Date: 20250606
  Transmission Date: 20250717
  Serious: No
  Sender: DAIICHI
  Company Number: DE-ASTRAZENECA-202412GLO013064DE

PATIENT
  Sex: Female
  Weight: 67 kg

DRUGS (7)
  1. ENHERTU [Suspect]
     Active Substance: FAM-TRASTUZUMAB DERUXTECAN-NXKI
     Indication: Breast cancer metastatic
     Dosage: 5.4 MG/KG, ONCE EVERY 3 WK
     Route: 042
     Dates: start: 20241014
  2. APREPITANT [Concomitant]
     Active Substance: APREPITANT
     Indication: Nausea
     Dosage: 125 MILLIGRAM, QD
     Route: 048
     Dates: start: 20241014
  3. APREPITANT [Concomitant]
     Active Substance: APREPITANT
     Dosage: 80 MILLIGRAM, QD
     Route: 048
     Dates: start: 20241015
  4. ONDANSETRON [Concomitant]
     Active Substance: ONDANSETRON
     Indication: Nausea
     Route: 042
     Dates: start: 20241014
  5. ONDANSETRON [Concomitant]
     Active Substance: ONDANSETRON
     Route: 048
     Dates: start: 20241015
  6. DEXAMETHASONE SODIUM PHOSPHATE [Concomitant]
     Active Substance: DEXAMETHASONE SODIUM PHOSPHATE
     Indication: Nausea
     Dosage: 8 MILLIGRAM, QD
     Route: 042
     Dates: start: 20241014
  7. DEXAMETHASONE SODIUM PHOSPHATE [Concomitant]
     Active Substance: DEXAMETHASONE SODIUM PHOSPHATE
     Dosage: 8 MILLIGRAM, QD
     Route: 042
     Dates: start: 20241015

REACTIONS (1)
  - Nail disorder [Recovered/Resolved]

NARRATIVE: CASE EVENT DATE: 20241202
